FAERS Safety Report 9780574 (Version 1)
Quarter: 2013Q4

REPORT INFORMATION
  Report Type: Spontaneous
  Country: IL (occurrence: IL)
  Receive Date: 20131224
  Receipt Date: 20131224
  Transmission Date: 20140711
  Serious: Yes (Hospitalization)
  Sender: FDA-Public Use
  Company Number: IL-AMGEN-ISRSP2013090089

PATIENT
  Age: 46 Year
  Sex: Female

DRUGS (5)
  1. NEULASTIM [Suspect]
     Indication: NEUTROPENIA
     Dosage: UNK
     Route: 065
  2. NEULASTIM [Suspect]
     Indication: FEBRILE NEUTROPENIA
  3. ADRIAMYCIN /00330901/ [Suspect]
     Indication: BREAST CANCER
     Dosage: UNK
     Route: 065
  4. CYCLOPHOSPHAMIDE [Suspect]
     Indication: BREAST CANCER
     Dosage: UNK
     Route: 065
  5. EPIRUBICIN                         /00699302/ [Concomitant]
     Indication: FEBRILE NEUTROPENIA
     Dosage: UNK
     Route: 065

REACTIONS (1)
  - Febrile neutropenia [Unknown]
